FAERS Safety Report 16190240 (Version 1)
Quarter: 2019Q2

REPORT INFORMATION
  Report Type: Spontaneous
  Country: US (occurrence: US)
  Receive Date: 20190311
  Receipt Date: 20190311
  Transmission Date: 20190711
  Serious: No
  Sender: FDA-Public Use
  Company Number: None

PATIENT
  Age: 58 Year
  Sex: Female

DRUGS (1)
  1. PROLIA [Suspect]
     Active Substance: DENOSUMAB
     Indication: OSTEOPOROSIS
     Dosage: ?          OTHER FREQUENCY:EVERY 6 MONTHS ;?
     Route: 058
     Dates: start: 20190306

REACTIONS (5)
  - Vomiting [None]
  - Diarrhoea [None]
  - Chills [None]
  - Hyperhidrosis [None]
  - Sleep deficit [None]

NARRATIVE: CASE EVENT DATE: 20190306
